FAERS Safety Report 8044937-3 (Version None)
Quarter: 2012Q1

REPORT INFORMATION
  Report Type: 
  Country: None (occurrence: None)
  Receive Date: 20120110
  Receipt Date: 20111229
  Transmission Date: 20120608
  Serious: Yes (Hospitalization)
  Sender: FDA-Public Use
  Company Number: 2011AP003088

PATIENT
  Age: 69 Year
  Sex: Male

DRUGS (9)
  1. LEVOTHYROXINE SODIUM [Concomitant]
  2. ALBUTEROL SULFATE AND IPRATROPIUM BROMIDE [Concomitant]
  3. CARVEDILOL [Suspect]
     Indication: CARDIAC FAILURE
     Dosage: 25 MG; AM; 50 MG; PM, 25 MG, BID;
  4. CARVEDILOL [Suspect]
     Indication: CARDIAC FAILURE
     Dosage: 25 MG; AM; 50 MG; PM, 25 MG, BID;
  5. EPLERENONE [Concomitant]
  6. FUROSEMIDE [Concomitant]
  7. LISINOPRIL [Concomitant]
  8. WARFARIN SODIUM [Concomitant]
  9. ATORVASTATIN [Concomitant]

REACTIONS (9)
  - CARDIAC FAILURE [None]
  - CHRONIC OBSTRUCTIVE PULMONARY DISEASE [None]
  - RESPIRATORY DISTRESS [None]
  - RESPIRATORY TRACT INFECTION [None]
  - WITHDRAWAL SYNDROME [None]
  - WHEEZING [None]
  - BENIGN PROSTATIC HYPERPLASIA [None]
  - CONDITION AGGRAVATED [None]
  - URINARY RETENTION [None]
